FAERS Safety Report 6400830-0 (Version None)
Quarter: 2009Q4

REPORT INFORMATION
  Report Type: 
  Country: None (occurrence: None)
  Receive Date: 20091009
  Receipt Date: 20081120
  Transmission Date: 20100525
  Serious: Yes (Other)
  Sender: FDA-Public Use
  Company Number: 2008SP023731

PATIENT
  Age: 63 Year
  Sex: Male

DRUGS (2)
  1. TEMODAR [Suspect]
     Indication: ASTROCYTOMA
     Dosage: 75 MG/M2;     ;PO
     Route: 048
     Dates: start: 20080908, end: 20081006
  2. NEUPOGEN [Concomitant]

REACTIONS (1)
  - APLASTIC ANAEMIA [None]
